FAERS Safety Report 6659881-3 (Version None)
Quarter: 2010Q1

REPORT INFORMATION
  Report Type: 
  Country: None (occurrence: None)
  Receive Date: 20100330
  Receipt Date: 20100330
  Transmission Date: 20100710
  Serious: Yes (Disabling)
  Sender: FDA-Public Use
  Company Number: None

PATIENT
  Age: 49 Year
  Sex: Female
  Weight: 62.5964 kg

DRUGS (2)
  1. LEVAQUIN [Suspect]
     Indication: PNEUMONIA
     Dosage: 750MG 1X DAY IV DRIP; 500MG 1X DAY PO
     Route: 041
     Dates: start: 20091226, end: 20091230
  2. LEVAQUIN [Suspect]
     Indication: PNEUMONIA
     Dosage: 750MG 1X DAY IV DRIP; 500MG 1X DAY PO
     Route: 041
     Dates: start: 20100101, end: 20100105

REACTIONS (6)
  - DYSSTASIA [None]
  - GAIT DISTURBANCE [None]
  - JOINT SWELLING [None]
  - PAIN IN EXTREMITY [None]
  - SWELLING [None]
  - TENDON DISORDER [None]
